FAERS Safety Report 6107908-X (Version None)
Quarter: 2009Q1

REPORT INFORMATION
  Report Type: 
  Country: None (occurrence: None)
  Receive Date: 20090309
  Receipt Date: 20090302
  Transmission Date: 20090719
  Serious: Yes (Other)
  Sender: FDA-Public Use
  Company Number: GB-MERCK-0902GBR00058

PATIENT
  Age: 62 Year
  Sex: Female
  Weight: 86 kg

DRUGS (4)
  1. CANCIDAS [Suspect]
     Indication: PNEUMONIA FUNGAL
     Route: 042
     Dates: start: 20090119, end: 20090123
  2. HYDROCORTISONE [Concomitant]
     Indication: FUNGAL INFECTION
     Route: 042
     Dates: start: 20090120
  3. PRIMAXIN [Concomitant]
     Indication: PNEUMONIA
     Route: 042
     Dates: start: 20090120, end: 20090123
  4. SEPTRIN [Concomitant]
     Indication: PNEUMONIA
     Route: 042
     Dates: start: 20090120, end: 20090123

REACTIONS (8)
  - ABDOMINAL PAIN [None]
  - DIZZINESS [None]
  - DYSPNOEA [None]
  - FLUSHING [None]
  - MUSCULAR WEAKNESS [None]
  - NAUSEA [None]
  - PALPITATIONS [None]
  - TREMOR [None]
